FAERS Safety Report 8996572 (Version 1)
Quarter: 2013Q1

REPORT INFORMATION
  Report Type: Spontaneous
  Country: US (occurrence: US)
  Receive Date: 20130104
  Receipt Date: 20130104
  Transmission Date: 20140127
  Serious: No
  Sender: FDA-Public Use
  Company Number: US-PFIZER INC-2012253302

PATIENT
  Age: 54 Year
  Sex: Female
  Weight: 66.21 kg

DRUGS (8)
  1. LYRICA [Suspect]
     Indication: NERVE INJURY
     Dosage: 50 MG, 2X/DAY
     Dates: start: 20121211, end: 201212
  2. SPIRIVA [Concomitant]
     Dosage: UNK
  3. SYMBICORT [Concomitant]
     Dosage: UNK
  4. ALBUTEROL [Concomitant]
  5. ALBUTEROL [Concomitant]
     Dosage: UNK
  6. METOPROLOL [Concomitant]
     Indication: CARDIAC DISORDER
     Dosage: UNK
  7. ACETYLSALICYLIC ACID [Concomitant]
     Indication: CARDIAC DISORDER
     Dosage: 25 MG, DAILY
  8. FAMOTIDINE [Concomitant]
     Indication: GASTROOESOPHAGEAL REFLUX DISEASE
     Dosage: UNK

REACTIONS (4)
  - Vision blurred [Recovered/Resolved]
  - Dizziness [Recovered/Resolved]
  - Drug intolerance [Unknown]
  - Somnolence [Recovered/Resolved]
